FAERS Safety Report 6692762-8 (Version None)
Quarter: 2010Q2

REPORT INFORMATION
  Report Type: 
  Country: None (occurrence: None)
  Receive Date: 20100422
  Receipt Date: 20100407
  Transmission Date: 20101027
  Serious: Yes (Hospitalization, Other)
  Sender: FDA-Public Use
  Company Number: CA-GENENTECH-299113

PATIENT
  Sex: Male
  Weight: 54 kg

DRUGS (2)
  1. XOLAIR [Suspect]
     Indication: ASTHMA
     Dosage: 300 MG, Q2W
     Route: 058
     Dates: start: 20051019
  2. XOLAIR [Suspect]
     Dosage: 300 MG, Q2W
     Dates: start: 20100224

REACTIONS (7)
  - BIOPSY LUNG [None]
  - DYSPNOEA [None]
  - FATIGUE [None]
  - HAEMOPTYSIS [None]
  - INCREASED UPPER AIRWAY SECRETION [None]
  - LUNG INFECTION [None]
  - PNEUMONIA [None]
